FAERS Safety Report 19843237 (Version 1)
Quarter: 2021Q3

REPORT INFORMATION
  Report Type: Report from Study
  Country: DE (occurrence: DE)
  Receive Date: 20210916
  Receipt Date: 20210916
  Transmission Date: 20211014
  Serious: Yes (Hospitalization, Congenital Anomaly, Other)
  Sender: FDA-Public Use
  Company Number: DE-TAKEDA-2019TUS016646

PATIENT
  Age: 7 Decade
  Sex: Male
  Weight: 79 kg

DRUGS (8)
  1. ADENURIC [Concomitant]
     Active Substance: FEBUXOSTAT
     Dosage: 40 MILLIGRAM, QOD
     Route: 048
     Dates: start: 20190209
  2. DEXAMETHASONE. [Suspect]
     Active Substance: DEXAMETHASONE
     Indication: PLASMA CELL MYELOMA
     Dosage: 8 MILLIGRAM
     Route: 065
     Dates: start: 20180703, end: 20190506
  3. ASS?RATIOPHARM [Concomitant]
     Active Substance: ASPIRIN
     Dosage: 100 MILLIGRAM, QD
     Route: 048
     Dates: start: 20190209
  4. TORASEMID?RATIOPHARM [Concomitant]
     Active Substance: TORSEMIDE
     Dosage: 200 MILLIGRAM, QD
     Route: 048
     Dates: start: 20190209
  5. DARZALEX [Suspect]
     Active Substance: DARATUMUMAB
     Indication: PLASMA CELL MYELOMA
     Dosage: 560 MILLIGRAM
     Route: 065
     Dates: start: 20180828, end: 20190430
  6. ATORVASTATIN AL [Concomitant]
     Active Substance: ATORVASTATIN CALCIUM
     Dosage: 40 MILLIGRAM, QD
     Route: 048
     Dates: start: 20190209
  7. BORTEZOMIB. [Suspect]
     Active Substance: BORTEZOMIB
     Indication: PLASMA CELL MYELOMA
     Dosage: 2.5 MILLIGRAM
     Route: 065
     Dates: start: 20180703, end: 20190122
  8. DARZALEX [Suspect]
     Active Substance: DARATUMUMAB
     Dosage: 1170 MILLIGRAM
     Route: 065
     Dates: end: 20190430

REACTIONS (2)
  - Acute kidney injury [Recovered/Resolved]
  - Sepsis [Recovered/Resolved]

NARRATIVE: CASE EVENT DATE: 20190126
